FAERS Safety Report 11032360 (Version 3)
Quarter: 2015Q4

REPORT INFORMATION
  Report Type: Spontaneous
  Country: US (occurrence: US)
  Receive Date: 20150415
  Receipt Date: 20151207
  Transmission Date: 20160304
  Serious: Yes (Hospitalization, Disabling, Other)
  Sender: FDA-Public Use
  Company Number: US-JNJFOC-20150210432

PATIENT
  Age: 71 Year
  Sex: Female
  Weight: 52.16 kg

DRUGS (16)
  1. XARELTO [Suspect]
     Active Substance: RIVAROXABAN
     Indication: ATRIAL FIBRILLATION
     Route: 048
  2. DELTASON [Concomitant]
     Dosage: 3MG AND 4MG ALTERNATES EVERY OTHER DAY
     Route: 048
  3. DRISDOL [Concomitant]
     Active Substance: ERGOCALCIFEROL
     Route: 048
  4. NOVOLOG [Concomitant]
     Active Substance: INSULIN ASPART
     Dosage: 3-10 UNITS INTO SKIN WITH LUNCH FOR 30 DAYS
     Route: 058
  5. NOVOLOG [Concomitant]
     Active Substance: INSULIN ASPART
     Dosage: 3-10 UNITS ONCE DAILY WITH DINNER
     Route: 058
  6. CYCLOSPORIN [Concomitant]
     Active Substance: CYCLOSPORINE
     Dosage: ONCE IN THE MORNING
     Route: 048
  7. NOVOLOG [Concomitant]
     Active Substance: INSULIN ASPART
     Dosage: 100 UNITS/ML, 0-7 UNITS INTO SKIN WITH MEALS AND BEDTIME
     Route: 058
  8. SENOKOT [Concomitant]
     Active Substance: SENNOSIDES
     Route: 048
  9. CYCLOSPORIN [Concomitant]
     Active Substance: CYCLOSPORINE
     Route: 048
  10. CIPROFLOXACIN. [Concomitant]
     Active Substance: CIPROFLOXACIN
     Route: 048
  11. MYFORTIC [Concomitant]
     Active Substance: MYCOPHENOLATE SODIUM
     Route: 048
  12. LEVEMIR [Concomitant]
     Active Substance: INSULIN DETEMIR
     Dosage: 100 UNIT/ML SOLUTION
     Route: 058
  13. COLACE [Concomitant]
     Active Substance: DOCUSATE SODIUM
     Indication: CONSTIPATION
     Route: 048
  14. NORCO [Concomitant]
     Active Substance: ACETAMINOPHEN\HYDROCODONE BITARTRATE
     Indication: PAIN
     Dosage: 10-325 MG
     Route: 048
  15. NOVOLOG [Concomitant]
     Active Substance: INSULIN ASPART
     Dosage: 3-10 UNITS ONCE DAILY WITH BREAKFAST
     Route: 058
  16. XARELTO [Suspect]
     Active Substance: RIVAROXABAN
     Indication: CEREBROVASCULAR ACCIDENT PROPHYLAXIS
     Route: 048

REACTIONS (9)
  - Hip arthroplasty [Unknown]
  - Supraventricular tachycardia [Unknown]
  - Adverse event [Unknown]
  - Cardiac pacemaker insertion [Unknown]
  - Aortic valve disease [Unknown]
  - Sinus node dysfunction [Unknown]
  - Atrioventricular block [Unknown]
  - Anaemia [Unknown]
  - Haematoma [Recovered/Resolved with Sequelae]

NARRATIVE: CASE EVENT DATE: 201310
